FAERS Safety Report 17854031 (Version 1)
Quarter: 2020Q2

REPORT INFORMATION
  Report Type: Spontaneous
  Country: GB (occurrence: GB)
  Receive Date: 20200603
  Receipt Date: 20200603
  Transmission Date: 20200714
  Serious: Yes (Other)
  Sender: FDA-Public Use
  Company Number: GB-AUROBINDO-AUR-APL-2020-024919

PATIENT
  Age: 3 Year
  Sex: Male

DRUGS (8)
  1. PARACETAMOL [Suspect]
     Active Substance: ACETAMINOPHEN
     Indication: CHRONIC PAROXYSMAL HEMICRANIA
     Dosage: UNK
     Route: 065
  2. OXCARBAZEPINE. [Suspect]
     Active Substance: OXCARBAZEPINE
     Indication: CHRONIC PAROXYSMAL HEMICRANIA
     Dosage: UNK
     Route: 065
  3. CARBAMAZEPINE. [Concomitant]
     Active Substance: CARBAMAZEPINE
     Indication: MOOD ALTERED
     Dosage: UNK
     Route: 065
  4. CARBAMAZEPINE. [Concomitant]
     Active Substance: CARBAMAZEPINE
     Indication: BIPOLAR DISORDER
  5. GABAPENTIN. [Suspect]
     Active Substance: GABAPENTIN
     Indication: CHRONIC PAROXYSMAL HEMICRANIA
     Dosage: UNK
     Route: 065
  6. RISPERIDONE. [Suspect]
     Active Substance: RISPERIDONE
     Indication: MOOD ALTERED
     Dosage: UNK
     Route: 065
  7. RISPERIDONE. [Suspect]
     Active Substance: RISPERIDONE
     Indication: BIPOLAR DISORDER
  8. AMITRIPTYLINE [Suspect]
     Active Substance: AMITRIPTYLINE
     Indication: CHRONIC PAROXYSMAL HEMICRANIA
     Dosage: UNK
     Route: 065

REACTIONS (3)
  - Tardive dyskinesia [Recovering/Resolving]
  - Withdrawal syndrome [Recovering/Resolving]
  - Treatment failure [Unknown]
